FAERS Safety Report 6164814-2 (Version None)
Quarter: 2009Q2

REPORT INFORMATION
  Report Type: 
  Country: None (occurrence: None)
  Receive Date: 20090423
  Receipt Date: 20090415
  Transmission Date: 20091009
  Serious: Yes (Other)
  Sender: FDA-Public Use
  Company Number: PHHY2009US14439

PATIENT
  Age: 51 Year
  Sex: Male

DRUGS (3)
  1. ZOLEDRONIC ACID [Suspect]
     Indication: METASTASES TO BONE
     Dosage: 4 MG, QMO
     Route: 042
  2. GEMCITABINE [Concomitant]
     Dosage: 1000 MG/M^2 WEEKLY FOR 2 OUT OF 3 WEEKS
  3. ERLOTINIB [Concomitant]
     Dosage: 100 MG/ DAY
     Route: 048

REACTIONS (5)
  - HYPOAESTHESIA ORAL [None]
  - INFLAMMATION [None]
  - LOOSE TOOTH [None]
  - OSTEONECROSIS [None]
  - PAIN IN JAW [None]
